FAERS Safety Report 5088506-6 (Version None)
Quarter: 2006Q3

REPORT INFORMATION
  Report Type: 
  Country: None (occurrence: None)
  Receive Date: 20060822
  Receipt Date: 20060727
  Transmission Date: 20061208
  Serious: Yes (Hospitalization)
  Sender: FDA-Public Use
  Company Number: 2006037016

PATIENT
  Age: 12 Year
  Sex: Male
  Weight: 31.5 kg

DRUGS (4)
  1. GENOTROPIN [Suspect]
     Indication: BODY HEIGHT BELOW NORMAL
     Dosage: SEE IMAGE
     Route: 058
     Dates: start: 20020920
  2. GENOTROPIN [Suspect]
     Indication: BODY HEIGHT BELOW NORMAL
     Dosage: SEE IMAGE
     Route: 058
     Dates: start: 20030423
  3. GENOTROPIN [Suspect]
     Indication: BODY HEIGHT BELOW NORMAL
     Dosage: SEE IMAGE
     Route: 058
     Dates: start: 20031126
  4. GENOTROPIN [Suspect]
     Indication: BODY HEIGHT BELOW NORMAL
     Dosage: SEE IMAGE
     Route: 058
     Dates: start: 20041013

REACTIONS (3)
  - ACUTE MYELOID LEUKAEMIA [None]
  - ANAEMIA [None]
  - PYREXIA [None]
